FAERS Safety Report 7525646-3 (Version None)
Quarter: 2011Q2

REPORT INFORMATION
  Report Type: 
  Country: None (occurrence: None)
  Receive Date: 20110606
  Receipt Date: 20110526
  Transmission Date: 20111010
  Serious: Yes (Hospitalization, Other)
  Sender: FDA-Public Use
  Company Number: NL-MEDIMMUNE-MEDI-0012729

PATIENT
  Sex: Female
  Weight: 7 kg

DRUGS (12)
  1. SEVELAMER [Concomitant]
     Dates: start: 20110225
  2. CARBASALATE [Concomitant]
  3. ERGOCALCIFEROL [Concomitant]
  4. SYNAGIS [Suspect]
     Route: 030
     Dates: start: 20101014, end: 20101014
  5. ACETAMINOPHEN [Concomitant]
  6. SYNAGIS [Suspect]
     Route: 030
     Dates: start: 20110221, end: 20110221
  7. DARBEPOETIN ALFA [Concomitant]
  8. SALUVIT [Concomitant]
  9. LEVOTHYROXINE SODIUM [Concomitant]
  10. CARBAMAZEPINE [Concomitant]
  11. CALCIUM ACETATE [Concomitant]
  12. SODIUM CHLORIDE [Concomitant]

REACTIONS (8)
  - EPILEPSY [None]
  - DEHYDRATION [None]
  - INFANTILE SPITTING UP [None]
  - HYPOTENSION [None]
  - CEREBRAL INFARCTION [None]
  - HEART RATE INCREASED [None]
  - FLUID IMBALANCE [None]
  - VOMITING [None]
